FAERS Safety Report 9715572 (Version 3)
Quarter: 2013Q4

REPORT INFORMATION
  Report Type: Spontaneous
  Country: JP (occurrence: JP)
  Receive Date: 20131127
  Receipt Date: 20131216
  Transmission Date: 20140711
  Serious: Yes (Life-Threatening)
  Sender: FDA-Public Use
  Company Number: JP-009507513-1310JPN004292

PATIENT
  Age: 76 Year
  Sex: Male
  Weight: 48 kg

DRUGS (4)
  1. GASTER [Suspect]
     Indication: UPPER GASTROINTESTINAL HAEMORRHAGE
     Dosage: 20 MG, BID
     Route: 041
     Dates: start: 20130914, end: 20130925
  2. ZOSYN [Suspect]
     Indication: INFECTION PROPHYLAXIS
     Dosage: 4.5 G, TID
     Route: 042
     Dates: start: 20130913, end: 20130916
  3. DIPRIVAN [Suspect]
     Indication: SEDATIVE THERAPY
     Dosage: 50 ML, UID/QD
     Route: 042
     Dates: start: 20130913, end: 20130914
  4. ELASPOL [Suspect]
     Indication: PROPHYLAXIS
     Dosage: 200 ML, UID/QD
     Route: 042
     Dates: start: 20130913, end: 20130913

REACTIONS (1)
  - Hyperbilirubinaemia [Recovered/Resolved]
